FAERS Safety Report 11114794 (Version 3)
Quarter: 2017Q1

REPORT INFORMATION
  Report Type: Spontaneous
  Country: US (occurrence: US)
  Receive Date: 20150515
  Receipt Date: 20170224
  Transmission Date: 20170428
  Serious: Yes (Other)
  Sender: FDA-Public Use
  Company Number: US-ELI_LILLY_AND_COMPANY-US201505003414

PATIENT
  Sex: Female
  Weight: 128 kg

DRUGS (7)
  1. CYMBALTA [Suspect]
     Active Substance: DULOXETINE HYDROCHLORIDE
     Indication: DEPRESSION
     Dosage: 1 DF, UNKNOWN
     Dates: start: 201206, end: 201405
  2. XANAX [Concomitant]
     Active Substance: ALPRAZOLAM
     Indication: PRODUCT USED FOR UNKNOWN INDICATION
     Dosage: 1 MG, BID
     Route: 065
  3. PROZAC [Concomitant]
     Active Substance: FLUOXETINE HYDROCHLORIDE
     Indication: PRODUCT USED FOR UNKNOWN INDICATION
     Dosage: 20 MG, QD
     Route: 065
  4. CYMBALTA [Suspect]
     Active Substance: DULOXETINE HYDROCHLORIDE
     Dosage: 30 MG, QD
     Route: 048
  5. TOPAMAX [Concomitant]
     Active Substance: TOPIRAMATE
     Indication: PRODUCT USED FOR UNKNOWN INDICATION
     Dosage: 1 DF, QD
     Route: 065
  6. CYMBALTA [Suspect]
     Active Substance: DULOXETINE HYDROCHLORIDE
     Indication: ANXIETY
     Dosage: 60 MG, QD
     Route: 048
  7. CYMBALTA [Suspect]
     Active Substance: DULOXETINE HYDROCHLORIDE
     Indication: NEURALGIA
     Dosage: 30 MG, QD
     Route: 048

REACTIONS (28)
  - Agitation [Unknown]
  - Sensory disturbance [Unknown]
  - Seizure [Unknown]
  - Paraesthesia [Unknown]
  - Tremor [Unknown]
  - Suicidal ideation [Unknown]
  - Loss of consciousness [Unknown]
  - Eye disorder [Unknown]
  - Amnesia [Unknown]
  - Dizziness [Unknown]
  - Insomnia [Unknown]
  - Muscle spasms [Unknown]
  - Balance disorder [Unknown]
  - Vertigo [Unknown]
  - Irritability [Unknown]
  - Drug withdrawal syndrome [Unknown]
  - Diarrhoea [Unknown]
  - Hyperhidrosis [Unknown]
  - Nightmare [Unknown]
  - Nausea [Unknown]
  - Fatigue [Unknown]
  - Confusional state [Unknown]
  - Dyspnoea [Unknown]
  - Cough [Unknown]
  - Sleep disorder [Unknown]
  - Mood swings [Unknown]
  - Vomiting [Unknown]
  - Headache [Unknown]
